FAERS Safety Report 8941088 (Version 1)
Quarter: 2012Q4

REPORT INFORMATION
  Report Type: 
  Country: CA (occurrence: CA)
  Receive Date: 20121203
  Receipt Date: 20121203
  Transmission Date: 20130627
  Serious: Yes (Other)
  Sender: FDA-Public Use
  Company Number: CA-ROCHE-1161996

PATIENT
  Sex: Male

DRUGS (3)
  1. XOLAIR [Suspect]
     Indication: PRODUCT USED FOR UNKNOWN INDICATION
     Route: 065
     Dates: start: 20070719
  2. PREDNISONE [Concomitant]
  3. CORTISONE [Concomitant]

REACTIONS (14)
  - Hypersensitivity [Recovering/Resolving]
  - Dyspnoea [Recovering/Resolving]
  - Influenza [Unknown]
  - Pulmonary congestion [Unknown]
  - Pallor [Unknown]
  - Nasal congestion [Unknown]
  - Malaise [Unknown]
  - Productive cough [Unknown]
  - Faeces discoloured [Unknown]
  - Back pain [Unknown]
  - Asthenia [Unknown]
  - Hypersomnia [Unknown]
  - Headache [Unknown]
  - Blood immunoglobulin E increased [Unknown]
